FAERS Safety Report 7955098-0 (Version None)
Quarter: 2011Q4

REPORT INFORMATION
  Report Type: 
  Country: None (occurrence: None)
  Receive Date: 20111202
  Receipt Date: 20111124
  Transmission Date: 20120403
  Serious: Yes (Other)
  Sender: FDA-Public Use
  Company Number: FR-NOVOPROD-339353

PATIENT

DRUGS (3)
  1. VICTOZA [Suspect]
     Indication: TYPE 2 DIABETES MELLITUS
     Dosage: 1.2 MG, QD
     Route: 058
     Dates: start: 20110715
  2. ASPIRIN [Concomitant]
     Dosage: 75 MG, QD
     Route: 048
  3. PRAVASTATIN [Concomitant]
     Dosage: 40 MG, QD
     Route: 048

REACTIONS (2)
  - PAIN [None]
  - CHOLESTASIS [None]
